FAERS Safety Report 5793195-9 (Version None)
Quarter: 2008Q2

REPORT INFORMATION
  Report Type: 
  Country: None (occurrence: None)
  Receive Date: 20080627
  Receipt Date: 20080612
  Transmission Date: 20081010
  Serious: Yes (Hospitalization)
  Sender: FDA-Public Use
  Company Number: DE-ASTRAZENECA-2008PK01280

PATIENT
  Age: 69 Year
  Sex: Female

DRUGS (9)
  1. SEROQUEL [Suspect]
     Dosage: 200 MG TO 400 MG
     Route: 048
     Dates: start: 20071126, end: 20071210
  2. SEROQUEL [Interacting]
     Route: 048
     Dates: start: 20071211, end: 20071217
  3. BELOC ZOK [Interacting]
     Route: 048
  4. HALDOL [Concomitant]
     Dosage: 6 MG TO 10 MG
     Route: 048
     Dates: start: 20071112, end: 20071125
  5. HALDOL [Concomitant]
     Route: 048
     Dates: start: 20071126
  6. AKINETON [Concomitant]
     Dosage: 4 MG TO 6 MG
     Route: 048
     Dates: start: 20071112
  7. LEVOTHYROXINE SODIUM [Concomitant]
     Route: 048
  8. DELIX [Concomitant]
     Route: 048
     Dates: start: 20071024
  9. VITAMIN B [Concomitant]
     Dates: start: 20071025

REACTIONS (2)
  - DRUG INTERACTION [None]
  - OEDEMA PERIPHERAL [None]
